FAERS Safety Report 20708503 (Version 1)
Quarter: 2022Q2

REPORT INFORMATION
  Report Type: Spontaneous
  Country: US (occurrence: US)
  Receive Date: 20220414
  Receipt Date: 20220414
  Transmission Date: 20220721
  Serious: No
  Sender: FDA-Public Use
  Company Number: US-drreddys-SPO/USA/22/0148831

PATIENT
  Age: 15 Year

DRUGS (1)
  1. ZENATANE [Suspect]
     Active Substance: ISOTRETINOIN
     Indication: Product used for unknown indication
     Dosage: RMA ISSUE DATE: 04 MARCH 2022 12:47:58 PM, 31 JANUARY 2022 03:05:04 PM, 09 OCTOBER 2021 04:26:08 PM,

REACTIONS (1)
  - Treatment noncompliance [Unknown]
